FAERS Safety Report 7226213-1 (Version None)
Quarter: 2011Q1

REPORT INFORMATION
  Report Type: 
  Country: None (occurrence: None)
  Receive Date: 20110114
  Receipt Date: 20110103
  Transmission Date: 20110831
  Serious: Yes (Disabling)
  Sender: FDA-Public Use
  Company Number: PHHY2010US88048

PATIENT
  Sex: Male

DRUGS (1)
  1. RECLAST [Suspect]
     Indication: OSTEOPOROSIS
     Dosage: UNK
     Dates: start: 20101123

REACTIONS (10)
  - BACK PAIN [None]
  - PYREXIA [None]
  - DIARRHOEA [None]
  - NAUSEA [None]
  - URINARY TRACT DISORDER [None]
  - ABDOMINAL PAIN [None]
  - ARTHRALGIA [None]
  - CHILLS [None]
  - PAIN IN EXTREMITY [None]
  - VOMITING [None]
